FAERS Safety Report 4851718-8 (Version None)
Quarter: 2005Q4

REPORT INFORMATION
  Report Type: 
  Country: None (occurrence: None)
  Receive Date: 20051209
  Receipt Date: 20051130
  Transmission Date: 20060501
  Serious: Yes (Hospitalization)
  Sender: FDA-Public Use
  Company Number: 2005RR-01265

PATIENT
  Age: 44 Year
  Sex: Male

DRUGS (2)
  1. IBUPROFEN [Suspect]
     Indication: BACK PAIN
     Dosage: 200 MG, ORAL;  400 MG, ORAL
     Route: 048
     Dates: start: 20041001, end: 20051114
  2. IBUPROFEN [Suspect]
     Indication: BACK PAIN
     Dosage: 200 MG, ORAL;  400 MG, ORAL
     Route: 048
     Dates: start: 20041001, end: 20051114

REACTIONS (4)
  - DECREASED APPETITE [None]
  - DUODENAL ULCER PERFORATION [None]
  - HELICOBACTER INFECTION [None]
  - WEIGHT DECREASED [None]
